FAERS Safety Report 13237879 (Version 1)
Quarter: 2017Q1

REPORT INFORMATION
  Report Type: Spontaneous
  Country: US (occurrence: US)
  Receive Date: 20170216
  Receipt Date: 20170216
  Transmission Date: 20170428
  Serious: Yes (Life-Threatening, Hospitalization)
  Sender: FDA-Public Use
  Company Number: US-SCIEGEN PHARMACEUTICALS INC-2017SCILIT00132

PATIENT

DRUGS (1)
  1. FLUOXETINE CAPSULES, USP [Suspect]
     Active Substance: FLUOXETINE HYDROCHLORIDE
     Indication: MAJOR DEPRESSION
     Dosage: 20 MG, QD
     Route: 065

REACTIONS (2)
  - Overdose [Recovered/Resolved]
  - Serotonin syndrome [Recovered/Resolved]
